FAERS Safety Report 14329272 (Version 1)
Quarter: 2017Q4

REPORT INFORMATION
  Report Type: Spontaneous
  Country: US (occurrence: US)
  Receive Date: 20171227
  Receipt Date: 20171227
  Transmission Date: 20180321
  Serious: No
  Sender: FDA-Public Use
  Company Number: US-IMPAX LABORATORIES, INC-2017-IPXL-02237

PATIENT
  Age: 94 Year
  Sex: Female
  Weight: 57 kg

DRUGS (1)
  1. OXYBUTYNIN CHLORIDE ER [Suspect]
     Active Substance: OXYBUTYNIN CHLORIDE
     Indication: HYPERTONIC BLADDER
     Dosage: 10 MG, 2 TIMES
     Route: 065
     Dates: end: 201707

REACTIONS (6)
  - Disorientation [Recovering/Resolving]
  - Nausea [Recovering/Resolving]
  - Hypokinesia [Recovering/Resolving]
  - Constipation [Unknown]
  - Confusional state [Recovering/Resolving]
  - Dizziness [Recovering/Resolving]
